FAERS Safety Report 5650408-1 (Version None)
Quarter: 2008Q1

REPORT INFORMATION
  Report Type: 
  Country: None (occurrence: None)
  Receive Date: 20080305
  Receipt Date: 20080223
  Transmission Date: 20080703
  Serious: Yes (Hospitalization)
  Sender: FDA-Public Use
  Company Number: US-JNJFOC-20080205739

PATIENT
  Sex: Female
  Weight: 94.35 kg

DRUGS (9)
  1. DURAGESIC-100 [Suspect]
     Indication: PANCREATITIS CHRONIC
     Route: 062
  2. NOVOLIN 70/30 [Concomitant]
     Dosage: IN THE EVENING
     Route: 058
  3. NOVOLIN 70/30 [Concomitant]
     Indication: DIABETES MELLITUS
     Dosage: IN THE MONRING
     Route: 058
  4. VERAPAMIL [Concomitant]
     Indication: HEART RATE IRREGULAR
     Route: 048
  5. ATENOLOL [Concomitant]
     Indication: HYPERTENSION
     Route: 048
  6. HYDROCHLOROTHIAZIDE [Concomitant]
     Indication: HYPERTENSION
     Route: 048
  7. XANAX [Concomitant]
     Indication: DEPRESSION
     Route: 048
  8. PERCOCET [Concomitant]
     Indication: PANCREATITIS ACUTE
     Route: 048
  9. PERCOCET [Concomitant]
     Indication: BREAKTHROUGH PAIN
     Dosage: AS NEEDED
     Route: 048

REACTIONS (4)
  - MEMORY IMPAIRMENT [None]
  - NAUSEA [None]
  - NERVOUSNESS [None]
  - PANCREATITIS ACUTE [None]
